FAERS Safety Report 12970079 (Version 2)
Quarter: 2016Q4

REPORT INFORMATION
  Report Type: Report from Study
  Country: MX (occurrence: MX)
  Receive Date: 20161123
  Receipt Date: 20161130
  Transmission Date: 20170207
  Serious: Yes (Other)
  Sender: FDA-Public Use
  Company Number: PHHY2016MX161077

PATIENT
  Sex: Female
  Weight: 48 kg

DRUGS (2)
  1. EXELON PATCH [Suspect]
     Active Substance: RIVASTIGMINE
     Indication: SENILE DEMENTIA
     Dosage: 27 MG, PATCH 15 (CM2), QD (FROM 2 YEARS AGO)
     Route: 062
     Dates: start: 2014
  2. EXELON PATCH [Suspect]
     Active Substance: RIVASTIGMINE
     Indication: DEPRESSION

REACTIONS (3)
  - Product use issue [Not Recovered/Not Resolved]
  - General physical health deterioration [Recovering/Resolving]
  - Escherichia urinary tract infection [Recovering/Resolving]

NARRATIVE: CASE EVENT DATE: 2014
